FAERS Safety Report 11440551 (Version 1)
Quarter: 2015Q3

REPORT INFORMATION
  Report Type: Report from Study
  Country: JP (occurrence: JP)
  Receive Date: 20150901
  Receipt Date: 20150901
  Transmission Date: 20151125
  Serious: Yes (Death, Other)
  Sender: FDA-Public Use
  Company Number: JP-TAKEDA-TCI2013A02269

PATIENT
  Age: 79 Year
  Sex: Male
  Weight: 55 kg

DRUGS (19)
  1. NATRIX [Concomitant]
     Active Substance: INDAPAMIDE
     Indication: HYPERTENSION
     Dosage: 1 MG, QD
     Route: 048
     Dates: end: 20120718
  2. OMEPRAL [Concomitant]
     Active Substance: OMEPRAZOLE
     Dosage: 20 MG, UNK
     Route: 048
     Dates: start: 20120203, end: 20120924
  3. LOPEMIN [Concomitant]
     Active Substance: LOPERAMIDE HYDROCHLORIDE
     Indication: DIARRHOEA
     Dosage: 1 MG, UNK
     Route: 048
     Dates: start: 20120227, end: 20120508
  4. URIEF [Concomitant]
     Active Substance: SILODOSIN
     Indication: BENIGN PROSTATIC HYPERPLASIA
     Dosage: 4 MG, BID
     Route: 048
     Dates: start: 20120305, end: 20121024
  5. MYSLEE [Concomitant]
     Active Substance: ZOLPIDEM TARTRATE
     Indication: INSOMNIA
     Dosage: 5 MG, QD
     Route: 048
     Dates: end: 20121208
  6. ALOGLIPTIN [Suspect]
     Active Substance: ALOGLIPTIN
     Indication: TYPE 2 DIABETES MELLITUS
     Dosage: 12.5 MG, QD
     Route: 048
     Dates: start: 20111018, end: 20120913
  7. HUSTAZOL [Concomitant]
     Active Substance: CLOPERASTINE
     Indication: BRONCHITIS
     Dosage: 30 MG, UNK
     Route: 048
     Dates: start: 20120520
  8. SENNARIDE [Concomitant]
     Active Substance: SENNOSIDES A AND B
     Indication: CONSTIPATION
     Dosage: 24 MG, QD
     Route: 048
     Dates: start: 20120702, end: 20121208
  9. OMEPRAL [Concomitant]
     Active Substance: OMEPRAZOLE
     Indication: GASTROOESOPHAGEAL REFLUX DISEASE
     Dosage: 10 MG, QD
     Route: 048
     Dates: start: 20120119, end: 20120202
  10. CELECOX [Concomitant]
     Active Substance: CELECOXIB
     Indication: BACK PAIN
     Dosage: 100 MG, BID
     Route: 048
     Dates: start: 20120203, end: 20121104
  11. KETEK [Concomitant]
     Active Substance: TELITHROMYCIN
     Indication: BRONCHITIS
     Dosage: 600 MG, UNK
     Route: 048
     Dates: start: 20120119, end: 20120125
  12. HARNAL [Concomitant]
     Active Substance: TAMSULOSIN HYDROCHLORIDE
     Dosage: 0.2 MG, UNK
     Route: 048
     Dates: start: 20120227, end: 20120304
  13. THEO-DUR [Concomitant]
     Active Substance: THEOPHYLLINE ANHYDROUS
     Indication: BRONCHITIS
     Dosage: 300 MG, UNK
     Route: 048
     Dates: start: 20120523
  14. ATELEC [Concomitant]
     Active Substance: CILNIDIPINE
     Indication: HYPERTENSION
     Dosage: 10 MG, QD
     Route: 048
     Dates: end: 20120718
  15. MUCODYNE [Concomitant]
     Active Substance: CARBOCYSTEINE
     Indication: BRONCHITIS
     Dosage: 1500 MG, UNK
     Route: 048
     Dates: start: 20120520
  16. LOXOPROFEN NA [Suspect]
     Active Substance: LOXOPROFEN SODIUM
     Indication: BACK PAIN
     Dosage: 120 MG, UNK
     Route: 048
     Dates: start: 20120111, end: 20120118
  17. PRIMPERAN [Concomitant]
     Active Substance: METOCLOPRAMIDE HYDROCHLORIDE
     Dosage: 10 MG, UNK
     Route: 048
     Dates: start: 20120119, end: 20120125
  18. BUP-4 [Concomitant]
     Active Substance: PROPIVERINE
     Indication: NEUROGENIC BLADDER
     Dosage: 20 MG, QD
     Route: 048
     Dates: start: 20120227, end: 20121024
  19. OLMETEC [Concomitant]
     Active Substance: OLMESARTAN MEDOXOMIL
     Indication: HYPERTENSION
     Dosage: 20 MG, QD
     Route: 048
     Dates: end: 20120914

REACTIONS (3)
  - Gastrooesophageal reflux disease [Recovered/Resolved]
  - Bile duct cancer [Fatal]
  - Condition aggravated [Recovered/Resolved]

NARRATIVE: CASE EVENT DATE: 20120203
